FAERS Safety Report 4611701-4 (Version None)
Quarter: 2005Q2

REPORT INFORMATION
  Report Type: 
  Country: None (occurrence: None)
  Receive Date: 20050311
  Receipt Date: 20041129
  Transmission Date: 20051028
  Serious: No
  Sender: FDA-Public Use
  Company Number: 2004-BP-13152BP

PATIENT
  Age: 74 Year
  Sex: Female

DRUGS (6)
  1. SPIRIVA [Suspect]
     Indication: CHRONIC OBSTRUCTIVE PULMONARY DISEASE
     Dosage: 18 MCG (18 MCG, 1 CAPSULE O DAY), IH
     Route: 055
     Dates: start: 20040901
  2. SPIRIVA [Suspect]
  3. ALBUTEROL [Concomitant]
  4. SEREVENT [Concomitant]
  5. FLOVENT [Concomitant]
  6. MIACALCIN (CALCITIONIN, SALMON) [Concomitant]

REACTIONS (2)
  - DRY MOUTH [None]
  - NASAL DRYNESS [None]
